FAERS Safety Report 11599592 (Version 4)
Quarter: 2016Q2

REPORT INFORMATION
  Report Type: Report from Study
  Country: BR (occurrence: BR)
  Receive Date: 20151006
  Receipt Date: 20160420
  Transmission Date: 20160815
  Serious: Yes (Other)
  Sender: FDA-Public Use
  Company Number: PHHY2014BR029978

PATIENT
  Age: 38 Year
  Sex: Male
  Weight: 71 kg

DRUGS (8)
  1. EXJADE [Suspect]
     Active Substance: DEFERASIROX
     Dosage: 3 DF OF 500 MG, QD
     Route: 048
     Dates: start: 201507
  2. EXJADE [Suspect]
     Active Substance: DEFERASIROX
     Dosage: 4 DF (30 MG/KG) UNK
     Route: 065
     Dates: end: 201604
  3. EXJADE [Suspect]
     Active Substance: DEFERASIROX
     Dosage: 3 DF (500 MG), QOD
     Route: 048
  4. DESFERAL [Concomitant]
     Active Substance: DEFEROXAMINE MESYLATE
     Indication: PRODUCT USED FOR UNKNOWN INDICATION
     Route: 065
  5. EXJADE [Suspect]
     Active Substance: DEFERASIROX
     Dosage: 4 DF (OF 500 MG), QD
     Route: 065
  6. EXJADE [Suspect]
     Active Substance: DEFERASIROX
     Dosage: 3 DF, UNK
     Route: 065
  7. EXJADE [Suspect]
     Active Substance: DEFERASIROX
     Indication: THALASSAEMIA
     Dosage: 250 MG, QD
     Route: 065
     Dates: start: 2007
  8. EXJADE [Suspect]
     Active Substance: DEFERASIROX
     Dosage: 2 DF (500 MG), UNK
     Route: 065

REACTIONS (9)
  - Haematemesis [Recovering/Resolving]
  - Nausea [Unknown]
  - Drug intolerance [Recovering/Resolving]
  - Retching [Recovering/Resolving]
  - Gastric disorder [Recovering/Resolving]
  - Abdominal pain [Recovering/Resolving]
  - Vomiting [Recovering/Resolving]
  - Blood iron increased [Unknown]
  - Concomitant disease aggravated [Recovering/Resolving]

NARRATIVE: CASE EVENT DATE: 20151208
